FAERS Safety Report 22651169 (Version 1)
Quarter: 2023Q2

REPORT INFORMATION
  Report Type: Spontaneous
  Country: IT (occurrence: None)
  Receive Date: 20230628
  Receipt Date: 20230628
  Transmission Date: 20230722
  Serious: Yes (Other)
  Sender: FDA-Public Use
  Company Number: 2023A146205

PATIENT
  Age: 69 Year
  Sex: Female

DRUGS (1)
  1. DURVALUMAB [Suspect]
     Active Substance: DURVALUMAB
     Route: 042

REACTIONS (4)
  - Malignant neoplasm progression [Unknown]
  - Arthralgia [Unknown]
  - Computerised tomogram abnormal [Unknown]
  - Peripheral swelling [Unknown]
